FAERS Safety Report 4963613-4 (Version None)
Quarter: 2006Q1

REPORT INFORMATION
  Report Type: 
  Country: None (occurrence: None)
  Receive Date: 20060330
  Receipt Date: 20060317
  Transmission Date: 20060701
  Serious: Yes (Other)
  Sender: FDA-Public Use
  Company Number: 2006030204

PATIENT
  Age: 62 Year
  Sex: Female

DRUGS (3)
  1. LIPITOR [Suspect]
     Indication: HYPERLIPIDAEMIA
     Dosage: 5 MG (1 IN 1 D), ORAL
     Route: 048
     Dates: start: 20060211, end: 20060217
  2. ALENDRONATE SODIUM [Concomitant]
  3. PRAVASTATIN [Concomitant]

REACTIONS (10)
  - ANGIOPATHY [None]
  - ARTERIOSCLEROTIC RETINOPATHY [None]
  - BLINDNESS TRANSIENT [None]
  - BLINDNESS UNILATERAL [None]
  - CAPILLARY DISORDER [None]
  - MALAISE [None]
  - MYALGIA [None]
  - RETINAL VEIN OCCLUSION [None]
  - SENSATION OF HEAVINESS [None]
  - VASCULAR OCCLUSION [None]
